FAERS Safety Report 15943645 (Version 5)
Quarter: 2019Q2

REPORT INFORMATION
  Report Type: Spontaneous
  Country: JP (occurrence: JP)
  Receive Date: 20190210
  Receipt Date: 20190417
  Transmission Date: 20190711
  Serious: Yes (Death, Hospitalization)
  Sender: FDA-Public Use
  Company Number: PHJP2019JP001702

PATIENT
  Age: 65 Year
  Sex: Male

DRUGS (1)
  1. VOTRIENT [Suspect]
     Active Substance: PAZOPANIB HYDROCHLORIDE
     Indication: SYNOVIAL SARCOMA
     Dosage: 600 MG, UNK
     Route: 048
     Dates: start: 20161207, end: 20170107

REACTIONS (7)
  - Fatigue [Unknown]
  - Synovial sarcoma [Fatal]
  - Liver disorder [Recovered/Resolved]
  - Jaundice [Unknown]
  - Decreased appetite [Unknown]
  - Neoplasm progression [Fatal]
  - Metastasis [Fatal]

NARRATIVE: CASE EVENT DATE: 20170107
